FAERS Safety Report 22661935 (Version 1)
Quarter: 2023Q2

REPORT INFORMATION
  Report Type: Spontaneous
  Country: US (occurrence: US)
  Receive Date: 20230630
  Receipt Date: 20230630
  Transmission Date: 20230721
  Serious: Yes (Other)
  Sender: FDA-Public Use
  Company Number: US-009507513-2306USA013022

PATIENT
  Age: 55 Year
  Sex: Male

DRUGS (6)
  1. KEYTRUDA [Suspect]
     Active Substance: PEMBROLIZUMAB
     Indication: Metastases to lymph nodes
     Dosage: UNK, QM
  2. KEYTRUDA [Suspect]
     Active Substance: PEMBROLIZUMAB
     Indication: Metastases to bone
  3. CISPLATIN [Concomitant]
     Active Substance: CISPLATIN
     Indication: Nasopharyngeal cancer
     Dosage: UNK, Q3W
  4. DOCETAXEL [Concomitant]
     Active Substance: DOCETAXEL
     Indication: Nasopharyngeal cancer
     Dosage: UNK, Q3W
  5. CARBOPLATIN [Concomitant]
     Active Substance: CARBOPLATIN
     Indication: Metastases to lymph nodes
     Dosage: UNK, QM
  6. CARBOPLATIN [Concomitant]
     Active Substance: CARBOPLATIN
     Indication: Metastases to bone

REACTIONS (4)
  - Sarcoidosis [Unknown]
  - Bronchiolitis [Unknown]
  - Asthma [Unknown]
  - Product use issue [Unknown]
